FAERS Safety Report 9201626 (Version 2)
Quarter: 2013Q3

REPORT INFORMATION
  Report Type: Report from Study
  Country: ES (occurrence: ES)
  Receive Date: 20130401
  Receipt Date: 20130903
  Transmission Date: 20140515
  Serious: Yes (Hospitalization)
  Sender: FDA-Public Use
  Company Number: PHHO2013ES001384

PATIENT
  Age: 68 Year
  Sex: Male
  Weight: 73.2 kg

DRUGS (7)
  1. NEORAL [Suspect]
     Indication: RENAL TRANSPLANT
     Dosage: 125 MG, BID
     Route: 048
     Dates: start: 20120901, end: 20130103
  2. MYFORTIC [Suspect]
     Indication: RENAL TRANSPLANT
     Dosage: 540 MG, BID
     Dates: start: 20120901, end: 20130103
  3. DECORTIN [Suspect]
     Indication: RENAL TRANSPLANT
     Dosage: 5 MG, UNK
     Dates: start: 20120905, end: 20130103
  4. OMEPRAZOL [Concomitant]
     Indication: PROPHYLAXIS
     Dosage: 20 MG, UNK
     Dates: start: 20121031, end: 20130103
  5. VALCYTE [Concomitant]
     Indication: PROPHYLAXIS
     Dosage: 1 DF, (450/48H)
     Dates: start: 20121017, end: 20121220
  6. SEPTRIN [Concomitant]
     Indication: PROPHYLAXIS
     Dosage: 1 MG, UNK
     Dates: start: 20120917, end: 20130103
  7. LERCANIDIPINE [Concomitant]
     Indication: HYPERTENSION
     Dosage: 10 MG, UNK
     Dates: start: 20121002, end: 20130103

REACTIONS (1)
  - Renal failure acute [Recovering/Resolving]
